FAERS Safety Report 14948729 (Version 2)
Quarter: 2018Q2

REPORT INFORMATION
  Report Type: Spontaneous
  Country: US (occurrence: US)
  Receive Date: 20180529
  Receipt Date: 20180628
  Transmission Date: 20180711
  Serious: No
  Sender: FDA-Public Use
  Company Number: US-LEXICON PHARMACEUTICALS, INC-18-1606-00577

PATIENT
  Sex: Male

DRUGS (16)
  1. PROLIA [Concomitant]
     Active Substance: DENOSUMAB
  2. PEPCID [Concomitant]
     Active Substance: FAMOTIDINE
  3. SODIUM BICARBONATE. [Concomitant]
     Active Substance: SODIUM BICARBONATE
  4. LUTETIUM DOTATATE (LU177) [Concomitant]
     Dates: start: 20161103, end: 20170721
  5. VITAMIN E [Concomitant]
     Active Substance: .ALPHA.-TOCOPHEROL
  6. OCTREOTIDE ACETATE. [Concomitant]
     Active Substance: OCTREOTIDE ACETATE
  7. CYANOCOBALAMIN. [Concomitant]
     Active Substance: CYANOCOBALAMIN
  8. REMEON [Concomitant]
  9. ALDACTONE [Concomitant]
     Active Substance: SPIRONOLACTONE
  10. PROZAC [Concomitant]
     Active Substance: FLUOXETINE HYDROCHLORIDE
  11. ATIVAN [Concomitant]
     Active Substance: LORAZEPAM
  12. OXYCODENE [Concomitant]
  13. TELOTRISTAT ETHYL [Suspect]
     Active Substance: TELOTRISTAT ETHYL
     Indication: CARCINOID SYNDROME
     Route: 048
     Dates: start: 201711
  14. ERGOCALCIFEROL. [Concomitant]
     Active Substance: ERGOCALCIFEROL
  15. NITROSTAT [Concomitant]
     Active Substance: NITROGLYCERIN
  16. IMITREX [Concomitant]
     Active Substance: SUMATRIPTAN SUCCINATE

REACTIONS (2)
  - Constipation [Recovered/Resolved]
  - Diarrhoea [Not Recovered/Not Resolved]
